FAERS Safety Report 7207623-5 (Version None)
Quarter: 2011Q1

REPORT INFORMATION
  Report Type: 
  Country: None (occurrence: None)
  Receive Date: 20110103
  Receipt Date: 20101221
  Transmission Date: 20110831
  Serious: Yes (Other)
  Sender: FDA-Public Use
  Company Number: IT-MYLANLABS-2010S1023352

PATIENT
  Sex: Female

DRUGS (1)
  1. LANSOPRAZOLE [Suspect]
     Indication: PRODUCT USED FOR UNKNOWN INDICATION

REACTIONS (1)
  - INTERNATIONAL NORMALISED RATIO INCREASED [None]
